FAERS Safety Report 17515247 (Version 2)
Quarter: 2020Q2

REPORT INFORMATION
  Report Type: Report from Study
  Country: None (occurrence: FR)
  Receive Date: 20200309
  Receipt Date: 20200403
  Transmission Date: 20200713
  Serious: Yes (Hospitalization, Other)
  Sender: FDA-Public Use
  Company Number: FR-ABBVIE-20K-056-3255899-00

PATIENT
  Sex: Male

DRUGS (1)
  1. DUODOPA [Suspect]
     Active Substance: CARBIDOPA\LEVODOPA
     Indication: PARKINSON^S DISEASE
     Route: 050
     Dates: start: 201911

REACTIONS (6)
  - Weight decreased [Not Recovered/Not Resolved]
  - Mobility decreased [Unknown]
  - Fall [Unknown]
  - General physical condition abnormal [Not Recovered/Not Resolved]
  - Fall [Not Recovered/Not Resolved]
  - Freezing phenomenon [Unknown]

NARRATIVE: CASE EVENT DATE: 20191124
